FAERS Safety Report 4862841-6 (Version None)
Quarter: 2005Q4

REPORT INFORMATION
  Report Type: 
  Country: None (occurrence: None)
  Receive Date: 20051221
  Receipt Date: 20051216
  Transmission Date: 20060501
  Serious: Yes (Death)
  Sender: FDA-Public Use
  Company Number: 2005UW19071

PATIENT

DRUGS (2)
  1. DIPRIVAN [Suspect]
     Indication: SEDATION
     Dosage: UNSPECIFIED
     Route: 042
  2. DIPRIVAN [Suspect]
     Indication: ANAESTHESIA
     Dosage: UNSPECIFIED
     Route: 042

REACTIONS (3)
  - CIRCULATORY COLLAPSE [None]
  - PROPOFOL INFUSION SYNDROME [None]
  - RHABDOMYOLYSIS [None]
